FAERS Safety Report 6954490-0 (Version None)
Quarter: 2010Q3

REPORT INFORMATION
  Report Type: 
  Country: None (occurrence: None)
  Receive Date: 20100829
  Receipt Date: 20100720
  Transmission Date: 20110219
  Serious: No
  Sender: FDA-Public Use
  Company Number: US-ABBOTT-10P-163-0658752-00

PATIENT
  Sex: Male
  Weight: 117.13 kg

DRUGS (8)
  1. NIASPAN [Suspect]
     Indication: HYPERLIPIDAEMIA
     Dosage: QPM: 1/2 TABLET
     Route: 048
     Dates: start: 20100713, end: 20100715
  2. NIASPAN [Suspect]
     Dosage: QPM
     Dates: start: 20100715
  3. NEXIUM [Concomitant]
     Indication: PRODUCT USED FOR UNKNOWN INDICATION
  4. CLARITIN [Concomitant]
     Indication: PRODUCT USED FOR UNKNOWN INDICATION
  5. COQ10 [Concomitant]
     Indication: MYALGIA
  6. ADVIL OR TYLENOL [Concomitant]
     Indication: PAIN
  7. CENTRUM SILVER [Concomitant]
     Indication: PRODUCT USED FOR UNKNOWN INDICATION
  8. SIMVASTATIN [Concomitant]
     Indication: PRODUCT USED FOR UNKNOWN INDICATION
     Dosage: 2 DAYS PRIOR TO STARTING NISPAN

REACTIONS (1)
  - MYALGIA [None]
